FAERS Safety Report 7224917-8 (Version None)
Quarter: 2011Q1

REPORT INFORMATION
  Report Type: 
  Country: None (occurrence: None)
  Receive Date: 20110104
  Receipt Date: 20101222
  Transmission Date: 20110831
  Serious: Yes (Other)
  Sender: FDA-Public Use
  Company Number: 2010-4482

PATIENT
  Sex: Male

DRUGS (9)
  1. ATORVASTATIN (ATORVASTATIN) [Concomitant]
  2. SINEMET [Concomitant]
  3. APO-GO (APOMORPHINE HYDROCHLORIDE) (APOMORPHINE HYDROCHLORIDE) [Suspect]
     Indication: PRODUCT USED FOR UNKNOWN INDICATION
     Dosage: (24 HOUR INFUSIONS)
     Dates: start: 20100714
  4. AMANTADINE HCL [Concomitant]
  5. SINEMET CR [Concomitant]
  6. ANTIHISTAMINES (ANTIHISTAMINES) [Concomitant]
  7. ANALGESICS (ANALGESICS) [Concomitant]
  8. CLONAZEPAM [Concomitant]
  9. ADALAT [Concomitant]

REACTIONS (5)
  - LOWER RESPIRATORY TRACT INFECTION [None]
  - AGGRESSION [None]
  - HALLUCINATIONS, MIXED [None]
  - CONFUSIONAL STATE [None]
  - AMNESIA [None]
